FAERS Safety Report 4948011-1 (Version None)
Quarter: 2006Q1

REPORT INFORMATION
  Report Type: 
  Country: None (occurrence: None)
  Receive Date: 20060320
  Receipt Date: 20051207
  Transmission Date: 20060701
  Serious: Yes (Hospitalization)
  Sender: FDA-Public Use
  Company Number: US-MERCK-0512USA01278

PATIENT
  Age: 45 Year
  Sex: Female
  Weight: 109 kg

DRUGS (7)
  1. VIOXX [Suspect]
     Indication: ARTHRITIS
     Route: 048
     Dates: start: 20020101, end: 20040901
  2. VIOXX [Suspect]
     Route: 048
     Dates: start: 20020101, end: 20040901
  3. VIOXX [Suspect]
     Indication: KNEE OPERATION
     Route: 048
     Dates: start: 20020101, end: 20040901
  4. VIOXX [Suspect]
     Route: 048
     Dates: start: 20020101, end: 20040901
  5. ESKALITH AND ESKALITH CR [Concomitant]
     Indication: BIPOLAR DISORDER
     Route: 065
  6. VITAMINS (UNSPECIFIED) [Concomitant]
     Route: 065
  7. KAVA [Concomitant]
     Route: 065
     Dates: start: 19880101

REACTIONS (6)
  - ANXIETY DISORDER [None]
  - ARTHROPATHY [None]
  - CEREBROVASCULAR ACCIDENT [None]
  - CHRONIC FATIGUE SYNDROME [None]
  - DEPRESSION [None]
  - INJURY [None]
